FAERS Safety Report 24786833 (Version 1)
Quarter: 2024Q4

REPORT INFORMATION
  Report Type: Spontaneous
  Country: US (occurrence: US)
  Receive Date: 20241230
  Receipt Date: 20241230
  Transmission Date: 20250114
  Serious: No
  Sender: ROCHE
  Company Number: US-ROCHE-10000156434

PATIENT
  Age: 10 Year
  Sex: Male

DRUGS (3)
  1. BEVACIZUMAB [Suspect]
     Active Substance: BEVACIZUMAB
     Indication: Von Hippel-Lindau disease
     Dosage: EVERY 3 TO 4 MONTHS
     Route: 050
  2. PROPRANOLOL [Concomitant]
     Active Substance: PROPRANOLOL HYDROCHLORIDE
  3. BELZUTIFAN [Concomitant]
     Active Substance: BELZUTIFAN

REACTIONS (2)
  - Off label use [Unknown]
  - No adverse event [Unknown]
